FAERS Safety Report 24334918 (Version 2)
Quarter: 2024Q4

REPORT INFORMATION
  Report Type: Spontaneous
  Country: PT (occurrence: PT)
  Receive Date: 20240918
  Receipt Date: 20241001
  Transmission Date: 20250114
  Serious: Yes (Congenital Anomaly, Other)
  Sender: AMERICAN REGENT
  Company Number: PT-AMERICAN REGENT INC-2024003512

PATIENT
  Sex: Female

DRUGS (5)
  1. VENOFER [Suspect]
     Active Substance: IRON SUCROSE
     Indication: Vitamin supplementation
     Dosage: UNK
     Route: 064
  2. FERINJECT [Suspect]
     Active Substance: FERRIC CARBOXYMALTOSE
     Indication: Vitamin supplementation
     Dosage: UNK
     Route: 064
  3. FOLIC ACID\IRON POLYMALTOSE [Suspect]
     Active Substance: FOLIC ACID\IRON POLYMALTOSE
     Indication: Vitamin supplementation
     Dosage: UNK
     Route: 064
  4. FOLIC ACID [Concomitant]
     Active Substance: FOLIC ACID
     Indication: Vitamin supplementation
     Dosage: UNK
     Route: 064
  5. IODINE [Concomitant]
     Active Substance: IODINE
     Indication: Vitamin supplementation
     Dosage: UNK
     Route: 064

REACTIONS (2)
  - Caudal regression syndrome [Unknown]
  - Foetal exposure during pregnancy [Unknown]
